FAERS Safety Report 17099628 (Version 2)
Quarter: 2019Q4

REPORT INFORMATION
  Report Type: Spontaneous
  Country: TH (occurrence: TH)
  Receive Date: 20191202
  Receipt Date: 20191210
  Transmission Date: 20200122
  Serious: Yes (Other)
  Sender: FDA-Public Use
  Company Number: TH-IGSA-SR10009491

PATIENT
  Age: 8 Year
  Sex: Male
  Weight: 26.3 kg

DRUGS (3)
  1. GAMUNEX-C [Suspect]
     Active Substance: HUMAN IMMUNOGLOBULIN G
     Indication: PRIMARY IMMUNODEFICIENCY SYNDROME
     Dosage: 75 ML, Q.WK.
     Route: 058
     Dates: start: 20191001, end: 20191001
  2. GAMUNEX-C [Suspect]
     Active Substance: HUMAN IMMUNOGLOBULIN G
     Dosage: 75 ML, Q.WK.
     Route: 058
  3. GAMUNEX-C [Suspect]
     Active Substance: HUMAN IMMUNOGLOBULIN G
     Indication: IMMUNOGLOBULINS DECREASED
     Dosage: 75 ML, Q.WK.
     Route: 058
     Dates: start: 20191025, end: 20191025

REACTIONS (2)
  - Skin necrosis [Recovered/Resolved with Sequelae]
  - Injection site ischaemia [Recovered/Resolved with Sequelae]

NARRATIVE: CASE EVENT DATE: 20191001
